FAERS Safety Report 5597104-7 (Version None)
Quarter: 2008Q1

REPORT INFORMATION
  Report Type: 
  Country: None (occurrence: None)
  Receive Date: 20080121
  Receipt Date: 20080104
  Transmission Date: 20080703
  Serious: Yes (Hospitalization)
  Sender: FDA-Public Use
  Company Number: BE-WYE-H02064908

PATIENT
  Age: 62 Year
  Sex: Male

DRUGS (1)
  1. CORDARONE [Suspect]
     Indication: CARDIAC DISORDER
     Route: 048
     Dates: end: 20071201

REACTIONS (3)
  - EMPHYSEMA [None]
  - PNEUMONIA [None]
  - RESPIRATORY FAILURE [None]
